FAERS Safety Report 22266823 (Version 1)
Quarter: 2023Q2

REPORT INFORMATION
  Report Type: Report from Study
  Country: US (occurrence: US)
  Receive Date: 20230428
  Receipt Date: 20230428
  Transmission Date: 20230722
  Serious: Yes (Other)
  Sender: FDA-Public Use
  Company Number: US-002147023-NVSC2023US094528

PATIENT
  Age: 19 Year
  Sex: Male

DRUGS (1)
  1. VIJOICE [Suspect]
     Active Substance: ALPELISIB
     Indication: PIK3CA related overgrowth spectrum
     Dosage: 50 MG, QD
     Route: 048
     Dates: start: 20230220

REACTIONS (7)
  - Syndactyly [Unknown]
  - Hydrocephalus [Unknown]
  - Scoliosis [Unknown]
  - Malformation venous [Unknown]
  - Cognitive disorder [Unknown]
  - Balance disorder [Unknown]
  - Developmental delay [Unknown]

NARRATIVE: CASE EVENT DATE: 20230220
